FAERS Safety Report 24674952 (Version 1)
Quarter: 2024Q4

REPORT INFORMATION
  Report Type: Spontaneous
  Country: US (occurrence: US)
  Receive Date: 20241128
  Receipt Date: 20241128
  Transmission Date: 20250115
  Serious: No
  Sender: Kenvue
  Company Number: US-KENVUE-20241107411

PATIENT
  Sex: Female

DRUGS (11)
  1. IBUPROFEN [Suspect]
     Active Substance: IBUPROFEN
     Indication: Chest pain
     Dosage: 600 MILLIGRAM, THRICE A DAY
     Route: 065
     Dates: start: 202409
  2. IBUPROFEN [Suspect]
     Active Substance: IBUPROFEN
     Dosage: 600 MILLIGRAM, TWICE A DAY, FOR 1 WEEK
     Route: 065
     Dates: start: 202409
  3. IBUPROFEN [Suspect]
     Active Substance: IBUPROFEN
     Dosage: 400 MILLIGRAM, TWICE A DAY, FOR 1 WEEK
     Route: 065
     Dates: start: 202409
  4. IBUPROFEN [Suspect]
     Active Substance: IBUPROFEN
     Dosage: 200 MILLIGRAM, TWICE A DAY, FOR 1 WEEK
     Route: 065
     Dates: start: 202409
  5. IBUPROFEN [Suspect]
     Active Substance: IBUPROFEN
     Dosage: 200 MILLIGRAM, ONCE A DAY, FOR 1 WEEK
     Route: 065
     Dates: start: 202409
  6. COLCHICINE [Concomitant]
     Active Substance: COLCHICINE
     Indication: Chest pain
     Dosage: 0.6 MILLIGRAM NIGHTLY (USUALLY DOSING BID, BUT HAS INTERACTION WITH HOME FLUCONAZOLE SO NIGHTLY  DOS
     Route: 065
     Dates: start: 202409
  7. FLUCONAZOLE [Concomitant]
     Active Substance: FLUCONAZOLE
     Indication: Product used for unknown indication
     Route: 065
  8. METOPROLOL [Concomitant]
     Active Substance: METOPROLOL
     Indication: Supraventricular tachycardia
     Dosage: 25 BID
     Route: 065
  9. FLECAINIDE ACETATE [Concomitant]
     Active Substance: FLECAINIDE ACETATE
     Indication: Supraventricular tachycardia
     Route: 065
  10. BLINATUMOMAB [Concomitant]
     Active Substance: BLINATUMOMAB
     Indication: Acute lymphocytic leukaemia
     Dosage: 196 MICROGRAM
     Route: 065
     Dates: start: 20240923
  11. DEXAMETHASONE [Concomitant]
     Active Substance: DEXAMETHASONE
     Indication: Acute lymphocytic leukaemia
     Dosage: 16 MILLIGRAM
     Route: 065
     Dates: start: 20240816

REACTIONS (1)
  - Prescribed overdose [Unknown]

NARRATIVE: CASE EVENT DATE: 20240901
